FAERS Safety Report 19025101 (Version 1)
Quarter: 2021Q1

REPORT INFORMATION
  Report Type: Spontaneous
  Country: US (occurrence: US)
  Receive Date: 20210316
  Receipt Date: 20210316
  Transmission Date: 20210420
  Serious: No
  Sender: FDA-Public Use
  Company Number: None

PATIENT
  Age: 81 Year
  Sex: Male
  Weight: 96.3 kg

DRUGS (1)
  1. NETARSUDIL (NETARSUDIL 0.02% SOLN,OPH) [Suspect]
     Active Substance: NETARSUDIL MESYLATE
     Indication: ATRIAL FIBRILLATION
     Dates: start: 20190521, end: 20190620

REACTIONS (2)
  - Eye pruritus [None]
  - Eye swelling [None]

NARRATIVE: CASE EVENT DATE: 20190620
